FAERS Safety Report 5136214-5 (Version None)
Quarter: 2006Q4

REPORT INFORMATION
  Report Type: 
  Country: None (occurrence: None)
  Receive Date: 20061027
  Receipt Date: 20060801
  Transmission Date: 20070319
  Serious: Yes (Hospitalization)
  Sender: FDA-Public Use
  Company Number: SE-JNJFOC-20061002428

PATIENT
  Age: 13 Year
  Sex: Male

DRUGS (2)
  1. CONCERTA [Suspect]
     Dosage: 10-12 TABLETS
  2. CONCERTA [Suspect]
     Indication: DRUG USE FOR UNKNOWN INDICATION
     Dosage: UNSPECIFIED ORDINARY DOSE

REACTIONS (6)
  - CONFUSIONAL STATE [None]
  - GAIT DISTURBANCE [None]
  - OVERDOSE [None]
  - TACHYCARDIA [None]
  - TIC [None]
  - TREMOR [None]
